FAERS Safety Report 9106173 (Version 1)
Quarter: 2013Q1

REPORT INFORMATION
  Report Type: Spontaneous
  Country: TW (occurrence: TW)
  Receive Date: 20130219
  Receipt Date: 20130219
  Transmission Date: 20140127
  Serious: Yes (Hospitalization)
  Sender: FDA-Public Use
  Company Number: TW-SPECTRUM PHARMACEUTICALS, INC.-13-F-TW-00048

PATIENT
  Age: 58 Year
  Sex: Male

DRUGS (6)
  1. FLUOROURACIL [Suspect]
     Indication: COLON CANCER
     Dosage: 1200 MG/M2, UNK
     Route: 042
  2. FLUOROURACIL [Suspect]
     Indication: METASTASES TO LIVER
     Dosage: 2400 MG/M2, FOR 46 HOURS, EVERY 2 WEEKS
     Route: 042
  3. IRINOTECAN [Suspect]
     Indication: COLON CANCER
     Dosage: 180 MG/M2, FOR 90 MINUTES, EVERY 2 WEEKS
     Route: 042
  4. IRINOTECAN [Suspect]
     Indication: METASTASES TO LIVER
  5. BEVACIZUMAB [Suspect]
     Indication: COLON CANCER
     Dosage: 5 MG/KG, FOR 90 MINUTES, EVERY 2 WEEKS
     Route: 042
  6. BEVACIZUMAB [Suspect]
     Indication: METASTASES TO LIVER

REACTIONS (13)
  - Hyperammonaemic encephalopathy [Recovered/Resolved]
  - Renal failure acute [Recovered/Resolved]
  - Nausea [Recovered/Resolved]
  - Vomiting [Recovered/Resolved]
  - Altered state of consciousness [Recovered/Resolved]
  - Confusional state [Recovered/Resolved]
  - Somnolence [Recovered/Resolved]
  - Lethargy [Recovered/Resolved]
  - Dysarthria [Recovered/Resolved]
  - Blood urea increased [Recovered/Resolved]
  - Blood creatinine increased [Recovered/Resolved]
  - Blood potassium increased [Recovered/Resolved]
  - Ammonia increased [Recovered/Resolved]
